FAERS Safety Report 4387485-4 (Version None)
Quarter: 2004Q2

REPORT INFORMATION
  Report Type: 
  Country: None (occurrence: None)
  Receive Date: 20040630
  Receipt Date: 20040521
  Transmission Date: 20050107
  Serious: No
  Sender: FDA-Public Use
  Company Number: US-BRISTOL-MYERS SQUIBB COMPANY-12595740

PATIENT
  Sex: Female

DRUGS (2)
  1. REYATAZ [Suspect]
     Route: 048
     Dates: start: 20040519
  2. RITONAVIR [Suspect]

REACTIONS (1)
  - RASH [None]
